FAERS Safety Report 6315028-4 (Version None)
Quarter: 2009Q3

REPORT INFORMATION
  Report Type: 
  Country: None (occurrence: None)
  Receive Date: 20090818
  Receipt Date: 20090818
  Transmission Date: 20100115
  Serious: Yes (Other)
  Sender: FDA-Public Use
  Company Number: None

PATIENT
  Age: 58 Year
  Sex: Male
  Weight: 87.5442 kg

DRUGS (3)
  1. ACULAR LS [Suspect]
     Indication: CATARACT
     Dosage: 1 DROP 4X DAILY OPHTHALMIC
     Route: 047
     Dates: start: 20090605, end: 20090713
  2. ACULAR LS [Suspect]
     Indication: EYE DISORDER
     Dosage: 1 DROP 4X DAILY OPHTHALMIC
     Route: 047
     Dates: start: 20090605, end: 20090713
  3. ACULAR LS [Suspect]
     Indication: INFLAMMATION
     Dosage: 1 DROP 4X DAILY OPHTHALMIC
     Route: 047
     Dates: start: 20090605, end: 20090713

REACTIONS (2)
  - ABDOMINAL PAIN LOWER [None]
  - HEADACHE [None]
